FAERS Safety Report 9081393 (Version 1)
Quarter: 2013Q1

REPORT INFORMATION
  Report Type: Report from Study
  Country: US (occurrence: US)
  Receive Date: 20130130
  Receipt Date: 20130130
  Transmission Date: 20140127
  Serious: No
  Sender: FDA-Public Use
  Company Number: US-ABBOTT-12P-163-0955349-00

PATIENT
  Age: 33 Year
  Sex: Female

DRUGS (3)
  1. HUMIRA 40 MG/0.8 ML PEN [Suspect]
     Indication: PSORIATIC ARTHROPATHY
     Dates: start: 20120707
  2. TRI-LEGEST WITH IRON [Concomitant]
     Indication: CONTRACEPTION
     Dosage: ONE PILL DAILY (28 DAY PILL PACK)
     Route: 048
  3. MVI-1 [Concomitant]
     Indication: PRODUCT USED FOR UNKNOWN INDICATION
     Dosage: 1 TABLET DAILY

REACTIONS (1)
  - Injection site pain [Recovered/Resolved]
